FAERS Safety Report 8356895-2 (Version None)
Quarter: 2012Q2

REPORT INFORMATION
  Report Type: 
  Country: None (occurrence: None)
  Receive Date: 20120514
  Receipt Date: 20120507
  Transmission Date: 20120825
  Serious: Yes (Hospitalization, Other)
  Sender: FDA-Public Use
  Company Number: US-CELGENEUS-163-21880-12041458

PATIENT
  Sex: Female

DRUGS (30)
  1. COLACE [Concomitant]
     Route: 065
  2. ALBUTEROL NEBULIZERS [Concomitant]
     Indication: WHEEZING
  3. LANTUS [Concomitant]
     Route: 065
  4. PROCRIT [Concomitant]
     Route: 065
     Dates: start: 20100818, end: 20101103
  5. OMEPRAZOLE [Concomitant]
     Route: 065
  6. DUONEB [Concomitant]
     Dosage: 1 GRAM
     Route: 065
     Dates: start: 20120101
  7. CO Q 10 [Concomitant]
     Route: 065
  8. PROCRIT [Concomitant]
     Route: 065
     Dates: start: 20110101, end: 20110915
  9. COUMADIN [Concomitant]
     Route: 065
  10. SENOKOT [Concomitant]
     Route: 065
  11. OXYGEN [Concomitant]
     Route: 065
  12. CEFTRIAXONE [Concomitant]
     Dosage: 1 GRAM
     Route: 065
     Dates: start: 20120101
  13. REVLIMID [Suspect]
     Dosage: 5 MILLIGRAM
     Route: 048
     Dates: start: 20120322
  14. ALLOPURINOL [Concomitant]
     Route: 065
  15. BENADRYL [Concomitant]
     Route: 065
  16. HUMALOG [Concomitant]
     Route: 065
  17. FOLIC ACID [Concomitant]
     Dosage: 1 MILLIGRAM
     Route: 065
  18. PRANDIN [Concomitant]
     Route: 065
  19. LUTEIN [Concomitant]
     Route: 065
  20. RED BLOOD CELLS [Concomitant]
     Dosage: 2 UNITS
     Route: 041
     Dates: start: 20120401, end: 20120401
  21. ALBUTEROL NEBULIZERS [Concomitant]
     Route: 065
     Dates: start: 20120101
  22. FERROUS SULFATE TAB [Concomitant]
     Route: 065
  23. IRON [Concomitant]
     Route: 065
  24. HEPARIN [Concomitant]
     Route: 065
  25. MULTI-VITAMINS [Concomitant]
     Route: 065
  26. DILTIAZEM HCL [Concomitant]
     Route: 065
  27. METOPROLOL SUCCINATE [Concomitant]
     Route: 065
  28. LASIX [Concomitant]
     Dosage: 20 MILLIGRAM
     Route: 065
  29. LASIX [Concomitant]
     Dosage: 20 MILLIGRAM
     Route: 065
     Dates: start: 20120101
  30. PROCRIT [Concomitant]
     Route: 065
     Dates: start: 20111228, end: 20120301

REACTIONS (9)
  - ATRIAL FIBRILLATION [None]
  - ANAEMIA HAEMOLYTIC AUTOIMMUNE [None]
  - CARDIAC FAILURE CONGESTIVE [None]
  - DYSPNOEA [None]
  - PNEUMONIA [None]
  - HYPERTENSION [None]
  - DIABETES MELLITUS [None]
  - BRONCHITIS [None]
  - FULL BLOOD COUNT DECREASED [None]
